FAERS Safety Report 25957222 (Version 1)
Quarter: 2025Q4

REPORT INFORMATION
  Report Type: Spontaneous
  Country: CN (occurrence: CN)
  Receive Date: 20251024
  Receipt Date: 20251024
  Transmission Date: 20260118
  Serious: Yes (Other)
  Sender: PFIZER
  Company Number: CN-PFIZER INC-PV202500124139

PATIENT
  Age: 71 Year
  Sex: Male
  Weight: 45 kg

DRUGS (1)
  1. DACOMITINIB [Suspect]
     Active Substance: DACOMITINIB
     Indication: Lung neoplasm malignant
     Dosage: 15.000 MG, 1X/DAY
     Route: 048
     Dates: start: 20250417, end: 20251010

REACTIONS (7)
  - Drug eruption [Unknown]
  - Pruritus [Unknown]
  - Erythema [Unknown]
  - Palmar erythema [Unknown]
  - Skin erosion [Unknown]
  - Effusion [Unknown]
  - Scab [Unknown]

NARRATIVE: CASE EVENT DATE: 20250101
